FAERS Safety Report 20148245 (Version 1)
Quarter: 2021Q4

REPORT INFORMATION
  Report Type: Other
  Country: US (occurrence: None)
  Receive Date: 20211204
  Receipt Date: 20211204
  Transmission Date: 20220303
  Serious: Yes (Death)
  Sender: FDA-Public Use
  Company Number: US-ROCHE-2971649

PATIENT
  Sex: Female

DRUGS (3)
  1. XELODA [Suspect]
     Active Substance: CAPECITABINE
     Indication: Neoplasm malignant
     Route: 048
  2. XELODA [Suspect]
     Active Substance: CAPECITABINE
     Indication: Anal cancer
  3. XELODA [Suspect]
     Active Substance: CAPECITABINE
     Indication: Tumour pain

REACTIONS (2)
  - Death [Fatal]
  - Off label use [Unknown]
